FAERS Safety Report 9856040 (Version 2)
Quarter: 2014Q1

REPORT INFORMATION
  Report Type: Spontaneous
  Country: ZA (occurrence: ZA)
  Receive Date: 20140130
  Receipt Date: 20140215
  Transmission Date: 20141002
  Serious: Yes (Life-Threatening, Other)
  Sender: FDA-Public Use
  Company Number: ZA-ASTRAZENECA-2014SE06218

PATIENT
  Sex: Male

DRUGS (1)
  1. VIMOVO [Suspect]
     Dosage: 500/20MG, 1 DF BID
     Route: 048

REACTIONS (6)
  - Cardiac failure [Recovered/Resolved]
  - Renal ischaemia [Recovered/Resolved]
  - Fluid retention [Recovered/Resolved]
  - Oedema peripheral [Recovered/Resolved]
  - Pulmonary oedema [Recovered/Resolved]
  - Dyspnoea [Recovered/Resolved]
